FAERS Safety Report 6237419-2 (Version None)
Quarter: 2009Q2

REPORT INFORMATION
  Report Type: 
  Country: None (occurrence: None)
  Receive Date: 20090619
  Receipt Date: 20090619
  Transmission Date: 20091009
  Serious: Yes (Hospitalization, Other)
  Sender: FDA-Public Use
  Company Number: IS-ABBOTT-09P-077-0578547-00

PATIENT
  Age: 39 Year
  Sex: Female

DRUGS (5)
  1. HUMIRA [Suspect]
     Indication: CROHN'S DISEASE
     Dates: start: 20081222, end: 20090305
  2. HUMIRA [Suspect]
     Dates: start: 20090317
  3. ENTOCORT EC [Concomitant]
     Indication: CROHN'S DISEASE
     Dates: end: 20090422
  4. PURINETHOL [Concomitant]
     Indication: CROHN'S DISEASE
  5. IMUREL [Concomitant]
     Indication: CROHN'S DISEASE
     Route: 048
     Dates: end: 20090318

REACTIONS (22)
  - ABDOMINAL PAIN [None]
  - ACUTE SINUSITIS [None]
  - ANOREXIA [None]
  - ARTHRALGIA [None]
  - BLISTER [None]
  - CYSTITIS [None]
  - DIARRHOEA [None]
  - HEAD DISCOMFORT [None]
  - IMMUNOSUPPRESSION [None]
  - INSOMNIA [None]
  - LETHARGY [None]
  - ORAL FUNGAL INFECTION [None]
  - ORAL PAIN [None]
  - PRURITUS [None]
  - PYREXIA [None]
  - RASH [None]
  - RED BLOOD CELL SEDIMENTATION RATE INCREASED [None]
  - STOMATITIS [None]
  - TONSILLITIS [None]
  - UPPER RESPIRATORY TRACT INFECTION [None]
  - VAGINAL INFECTION [None]
  - WEIGHT DECREASED [None]
